FAERS Safety Report 7800719-6 (Version None)
Quarter: 2011Q4

REPORT INFORMATION
  Report Type: 
  Country: None (occurrence: None)
  Receive Date: 20111006
  Receipt Date: 20111004
  Transmission Date: 20120403
  Serious: Yes (Other)
  Sender: FDA-Public Use
  Company Number: US-ABBOTT-11P-163-0852870-00

PATIENT
  Age: 59 Year
  Sex: Female
  Weight: 78.088 kg

DRUGS (17)
  1. HUMIRA [Suspect]
     Dates: start: 20110301, end: 20110401
  2. NORCO [Concomitant]
     Indication: PAIN
     Dosage: 10/325 MG DAILY
  3. CALCIUM WITH VITAMIN D [Concomitant]
     Indication: PRODUCT USED FOR UNKNOWN INDICATION
     Dosage: DAILY
  4. METHOTREXATE [Concomitant]
     Indication: PRODUCT USED FOR UNKNOWN INDICATION
  5. CELEBREX [Concomitant]
     Indication: PRODUCT USED FOR UNKNOWN INDICATION
  6. TIZANIDINE HCL [Concomitant]
     Indication: PRODUCT USED FOR UNKNOWN INDICATION
  7. XANAX [Concomitant]
     Indication: PANIC ATTACK
  8. HUMIRA [Suspect]
     Dates: start: 20110801
  9. HUMIRA [Suspect]
     Indication: RHEUMATOID ARTHRITIS
     Dates: start: 20090101, end: 20110101
  10. HUMIRA [Suspect]
     Dates: start: 20110601, end: 20110701
  11. FOLIC ACID [Concomitant]
     Indication: PRODUCT USED FOR UNKNOWN INDICATION
  12. ZOCOR [Concomitant]
     Indication: PRODUCT USED FOR UNKNOWN INDICATION
     Dosage: AT NIGHT
  13. NEBULIZER [Concomitant]
     Indication: RESPIRATORY TRACT CONGESTION
  14. FLECTOR [Concomitant]
     Indication: PRODUCT USED FOR UNKNOWN INDICATION
  15. HYDROCHLOROTHIAZIDE [Concomitant]
     Indication: PRODUCT USED FOR UNKNOWN INDICATION
  16. OMEGA [Concomitant]
     Indication: PRODUCT USED FOR UNKNOWN INDICATION
     Dosage: 2/200MG DAILY
  17. LEVOXYL [Concomitant]
     Indication: PRODUCT USED FOR UNKNOWN INDICATION

REACTIONS (6)
  - CATHETERISATION CARDIAC [None]
  - ARTHROSCOPY [None]
  - URINARY TRACT INFECTION [None]
  - BRONCHITIS [None]
  - INJECTION SITE PAIN [None]
  - INJECTION SITE VESICLES [None]
